FAERS Safety Report 5284468-7 (Version None)
Quarter: 2007Q1

REPORT INFORMATION
  Report Type: 
  Country: None (occurrence: None)
  Receive Date: 20070328
  Receipt Date: 20070319
  Transmission Date: 20070707
  Serious: Yes (Death, Life-Threatening, Hospitalization)
  Sender: FDA-Public Use
  Company Number: OSCN-GE-0703S-0124

PATIENT
  Age: 72 Year
  Sex: Male

DRUGS (3)
  1. OMNISCAN [Suspect]
     Indication: PERIPHERAL ARTERIAL OCCLUSIVE DISEASE
     Dosage: SEE IMAGE
     Dates: start: 20060123, end: 20060123
  2. OMNISCAN [Suspect]
     Indication: PERIPHERAL ARTERIAL OCCLUSIVE DISEASE
     Dosage: SEE IMAGE
     Dates: start: 20060224, end: 20060224
  3. OMNISCAN [Suspect]
     Indication: PERIPHERAL ARTERIAL OCCLUSIVE DISEASE
     Dosage: SEE IMAGE
     Dates: start: 20060228, end: 20060228

REACTIONS (1)
  - NEPHROGENIC FIBROSING DERMOPATHY [None]
